FAERS Safety Report 11536927 (Version 1)
Quarter: 2015Q3

REPORT INFORMATION
  Report Type: Spontaneous
  Country: US (occurrence: None)
  Receive Date: 20150921
  Receipt Date: 20150921
  Transmission Date: 20151125
  Serious: Yes (Disabling, Other)
  Sender: FDA-Public Use
  Company Number: None

PATIENT
  Age: 62 Year
  Sex: Female
  Weight: 106.6 kg

DRUGS (6)
  1. RED RICE YEAST [Concomitant]
     Active Substance: DIETARY SUPPLEMENT
  2. SIMVASTATIN. [Concomitant]
     Active Substance: SIMVASTATIN
  3. GLIMEPIRIDE. [Concomitant]
     Active Substance: GLIMEPIRIDE
  4. LISINOPRIL. [Concomitant]
     Active Substance: LISINOPRIL
  5. COENZYME Q10 [Concomitant]
     Active Substance: UBIDECARENONE
  6. JANUVIA [Suspect]
     Active Substance: SITAGLIPTIN PHOSPHATE
     Indication: TYPE 2 DIABETES MELLITUS
     Route: 048
     Dates: start: 20150713, end: 20150919

REACTIONS (11)
  - Renal pain [None]
  - Neck pain [None]
  - Pneumonia [None]
  - Swelling face [None]
  - Photophobia [None]
  - Pyrexia [None]
  - Headache [None]
  - Pneumothorax [None]
  - Peripheral swelling [None]
  - Glycosylated haemoglobin increased [None]
  - Bedridden [None]

NARRATIVE: CASE EVENT DATE: 20150916
